FAERS Safety Report 8338159-6 (Version None)
Quarter: 2012Q2

REPORT INFORMATION
  Report Type: 
  Country: None (occurrence: None)
  Receive Date: 20120504
  Receipt Date: 20120430
  Transmission Date: 20120825
  Serious: No
  Sender: FDA-Public Use
  Company Number: US-PFIZER INC-2012106427

PATIENT
  Sex: Female
  Weight: 63.492 kg

DRUGS (9)
  1. METOPROLOL [Concomitant]
     Indication: HYPERTENSION
     Dosage: UNK
  2. FOSAMAX [Concomitant]
     Indication: BONE DISORDER
     Dosage: UNK
  3. FOSAMAX [Concomitant]
     Indication: ARTHRITIS
  4. TOVIAZ [Suspect]
     Indication: MICTURITION DISORDER
     Dosage: 8 MG, 1X/DAY
     Route: 048
     Dates: start: 20120424
  5. CALCIUM WITH VITAMIN D [Concomitant]
     Dosage: UNK
  6. MULTI-VITAMINS [Concomitant]
     Dosage: UNK
  7. LEVOTHYROXINE [Concomitant]
     Indication: HYPOTHYROIDISM
     Dosage: UNK
  8. COLAZAL [Concomitant]
     Indication: IRRITABLE BOWEL SYNDROME
     Dosage: UNK
  9. ACETYLSALICYLIC ACID [Concomitant]
     Dosage: UNK

REACTIONS (2)
  - URINARY INCONTINENCE [None]
  - DRUG INTOLERANCE [None]
